FAERS Safety Report 10048025 (Version 2)
Quarter: 2014Q2

REPORT INFORMATION
  Report Type: Spontaneous
  Country: GR (occurrence: GR)
  Receive Date: 20140331
  Receipt Date: 20140609
  Transmission Date: 20141212
  Serious: Yes (Disabling)
  Sender: FDA-Public Use
  Company Number: GR-B.I. PHARMACEUTICALS,INC./RIDGEFIELD-2014-BI-13282GB

PATIENT
  Age: 90 Year
  Sex: Female

DRUGS (12)
  1. PRADAXA [Suspect]
     Indication: ATRIAL FIBRILLATION
     Dosage: 220 MG
     Route: 048
     Dates: end: 201403
  2. PRADAXA [Suspect]
     Dosage: 220 MG
     Route: 048
     Dates: start: 201404
  3. T4 [Concomitant]
     Indication: THYROID DISORDER
     Route: 065
  4. LOSEC [Concomitant]
     Indication: PROPHYLAXIS
     Route: 065
  5. PRESOLONE [Concomitant]
     Indication: ANTIINFLAMMATORY THERAPY
     Route: 065
  6. DONEPEZIL [Concomitant]
     Indication: DEMENTIA
     Route: 065
  7. CALCIORAL D3 [Concomitant]
     Indication: OSTEOPOROSIS
     Route: 065
  8. TRITTICO [Concomitant]
     Indication: DEPRESSION
     Route: 065
  9. SEROQUEL [Concomitant]
     Indication: PSYCHOTIC DISORDER
     Dosage: 75 MG
     Route: 065
  10. ACCUPRON [Concomitant]
     Indication: HYPERTENSION
     Route: 065
  11. MINIRIN [Concomitant]
     Route: 065
  12. FYSIOFOL [Concomitant]
     Indication: ANAEMIA
     Route: 065

REACTIONS (3)
  - Retinal haemorrhage [Recovered/Resolved]
  - Blindness [Not Recovered/Not Resolved]
  - Contusion [Not Recovered/Not Resolved]
